FAERS Safety Report 5691909-X (Version None)
Quarter: 2008Q2

REPORT INFORMATION
  Report Type: 
  Country: None (occurrence: None)
  Receive Date: 20080402
  Receipt Date: 20080326
  Transmission Date: 20081010
  Serious: Yes (Hospitalization)
  Sender: FDA-Public Use
  Company Number: NO-ABBOTT-07P-122-0356047-00

PATIENT
  Sex: Male

DRUGS (7)
  1. HUMIRA [Suspect]
     Indication: RHEUMATOID ARTHRITIS
     Route: 058
     Dates: start: 20030826, end: 20061001
  2. HYDROXYCHLOROQUINE SULFATE [Suspect]
     Indication: RHEUMATOID ARTHRITIS
     Route: 048
     Dates: start: 20040101, end: 20061001
  3. METHOTREXATE [Concomitant]
     Indication: DRUG USE FOR UNKNOWN INDICATION
     Dates: end: 20061001
  4. METHOTREXATE [Concomitant]
     Dates: start: 20061130
  5. CELECOXIB [Concomitant]
     Indication: RHEUMATOID ARTHRITIS
     Route: 048
     Dates: start: 20030826
  6. PREDNISOLONE [Concomitant]
     Indication: RHEUMATOID ARTHRITIS
     Route: 048
     Dates: start: 20030826
  7. PREDNISOLONE [Concomitant]

REACTIONS (6)
  - ATRIAL FLUTTER [None]
  - CARDIAC FAILURE CONGESTIVE [None]
  - DYSPNOEA [None]
  - ELECTROCARDIOGRAM ST SEGMENT ABNORMAL [None]
  - LIVER FUNCTION TEST ABNORMAL [None]
  - RENAL FUNCTION TEST ABNORMAL [None]
